FAERS Safety Report 10223138 (Version 2)
Quarter: 2014Q3

REPORT INFORMATION
  Report Type: Report from Study
  Country: NZ (occurrence: NZ)
  Receive Date: 20140607
  Receipt Date: 20140710
  Transmission Date: 20150326
  Serious: Yes (Life-Threatening, Other)
  Sender: FDA-Public Use
  Company Number: PHHY2014NZ068878

PATIENT
  Age: 28 Year
  Sex: Male
  Weight: 88.1 kg

DRUGS (1)
  1. CLOZARIL [Suspect]
     Active Substance: CLOZAPINE
     Indication: SCHIZOPHRENIA
     Dosage: 300 MG, QHS
     Route: 048
     Dates: start: 20140512, end: 20140527

REACTIONS (6)
  - Tachycardia [Recovered/Resolved]
  - Neutropenia [Unknown]
  - General physical health deterioration [Unknown]
  - Malaise [Recovered/Resolved]
  - Allergic myocarditis [Recovered/Resolved]
  - Pyrexia [Unknown]

NARRATIVE: CASE EVENT DATE: 20140525
